FAERS Safety Report 9697801 (Version 3)
Quarter: 2014Q1

REPORT INFORMATION
  Report Type: Report from Study
  Country: GB (occurrence: GB)
  Receive Date: 20131120
  Receipt Date: 20140228
  Transmission Date: 20141002
  Serious: Yes (Other)
  Sender: FDA-Public Use
  Company Number: PHFR2013GB005561

PATIENT
  Age: 44 Year
  Sex: Female

DRUGS (2)
  1. GILENYA [Suspect]
     Indication: MULTIPLE SCLEROSIS
     Dosage: 0.5 MG, QD
     Route: 048
     Dates: start: 20131001
  2. GABAPENTIN [Concomitant]

REACTIONS (3)
  - Bradycardia [Recovered/Resolved]
  - Hypotension [Recovering/Resolving]
  - Dizziness [Recovered/Resolved]
